FAERS Safety Report 8912736 (Version 2)
Quarter: 2012Q4

REPORT INFORMATION
  Report Type: 
  Country: JP (occurrence: JP)
  Receive Date: 20121115
  Receipt Date: 20121214
  Transmission Date: 20130627
  Serious: Yes (Hospitalization)
  Sender: FDA-Public Use
  Company Number: JP-ASTRAZENECA-2012SE85343

PATIENT
  Age: 91 Year
  Sex: Female

DRUGS (6)
  1. NEXIUM [Suspect]
     Indication: PROPHYLAXIS AGAINST GASTROINTESTINAL ULCER
     Route: 048
     Dates: start: 201210, end: 20121106
  2. URINORM [Suspect]
     Route: 065
  3. BAYASPIRIN [Concomitant]
  4. ALSIODOL [Concomitant]
  5. ALLOZYM [Concomitant]
  6. EVISTA [Concomitant]

REACTIONS (3)
  - Blood creatinine increased [Not Recovered/Not Resolved]
  - Drug eruption [Not Recovered/Not Resolved]
  - Tubulointerstitial nephritis [Not Recovered/Not Resolved]
